FAERS Safety Report 4443370-0 (Version None)
Quarter: 2004Q3

REPORT INFORMATION
  Report Type: 
  Country: None (occurrence: None)
  Receive Date: 20040901
  Receipt Date: 20040817
  Transmission Date: 20050211
  Serious: Yes (Hospitalization)
  Sender: FDA-Public Use
  Company Number: 04P-163-0270849-00

PATIENT
  Age: 68 Year
  Sex: Female

DRUGS (3)
  1. TRICOR [Suspect]
     Dosage: 160 MG, 1 IN  1 D, PER ORAL
     Route: 048
  2. VISICOL [Suspect]
     Indication: COLONOSCOPY
     Dosage: 20 TABLET, ONCE
     Dates: start: 20040718, end: 20040718
  3. DYAZIDE [Suspect]

REACTIONS (12)
  - ABDOMINAL PAIN [None]
  - BACK PAIN [None]
  - CHOLELITHIASIS [None]
  - HAEMORRHOIDS [None]
  - HYPERTRIGLYCERIDAEMIA [None]
  - NAUSEA [None]
  - PANCREATITIS ACUTE [None]
  - PROCTALGIA [None]
  - PSEUDOCYST [None]
  - RECTAL HAEMORRHAGE [None]
  - SHOCK [None]
  - VOMITING [None]
